FAERS Safety Report 23150371 (Version 2)
Quarter: 2024Q1

REPORT INFORMATION
  Report Type: Report from Study
  Country: EG (occurrence: EG)
  Receive Date: 20231106
  Receipt Date: 20240121
  Transmission Date: 20240410
  Serious: Yes (Other)
  Sender: FDA-Public Use
  Company Number: EG-002147023-NVSC2023EG213242

PATIENT
  Age: 24 Year
  Sex: Male

DRUGS (7)
  1. COSENTYX [Suspect]
     Active Substance: SECUKINUMAB
     Indication: Ankylosing spondylitis
     Dosage: ONE PREFILLED SUBCUTANEOUS PEN OF COSENTYX 150MG EVERY MONTH FOR ONE YEAR AS MAINTENANCE DOSE (WITHO
     Route: 058
     Dates: start: 202308
  2. COSENTYX [Suspect]
     Active Substance: SECUKINUMAB
     Dosage: UNK, QMO (2 PENS FIRST MONTH AS LOADING DOSE (OFF LABEL DOSE) THEN 1 PEN/MONTH AS PER HCP DESCION)/N
     Route: 058
     Dates: start: 20230927
  3. COSENTYX [Suspect]
     Active Substance: SECUKINUMAB
     Dosage: UNK
     Route: 065
  4. COSENTYX [Suspect]
     Active Substance: SECUKINUMAB
     Dosage: UNK
     Route: 065
  5. ACTIFED (PSEUDOEPHEDRINE HYDROCHLORIDE\TRIPROLIDINE HYDROCHLORIDE) [Concomitant]
     Active Substance: PSEUDOEPHEDRINE HYDROCHLORIDE\TRIPROLIDINE HYDROCHLORIDE
     Indication: Sinusitis
     Dosage: UNK, PRN
     Route: 065
     Dates: start: 2017
  6. ACTIFED (PSEUDOEPHEDRINE HYDROCHLORIDE\TRIPROLIDINE HYDROCHLORIDE) [Concomitant]
     Active Substance: PSEUDOEPHEDRINE HYDROCHLORIDE\TRIPROLIDINE HYDROCHLORIDE
     Dosage: 2 TABLETS WHEN NEEDED
     Route: 065
  7. ATARAX [Concomitant]
     Active Substance: HYDROXYZINE HYDROCHLORIDE
     Indication: Sinusitis
     Dosage: UNK, PRN
     Route: 065

REACTIONS (11)
  - Headache [Not Recovered/Not Resolved]
  - Vision blurred [Not Recovered/Not Resolved]
  - Rash macular [Unknown]
  - Eye allergy [Recovered/Resolved with Sequelae]
  - Vision blurred [Recovered/Resolved]
  - Abdominal pain upper [Recovered/Resolved]
  - Diarrhoea [Recovered/Resolved]
  - Rash [Recovered/Resolved]
  - Rash [Recovering/Resolving]
  - Diarrhoea [Recovering/Resolving]
  - Off label use [Not Recovered/Not Resolved]

NARRATIVE: CASE EVENT DATE: 20230801
